FAERS Safety Report 5565321-8 (Version None)
Quarter: 2007Q4

REPORT INFORMATION
  Report Type: 
  Country: None (occurrence: None)
  Receive Date: 20071218
  Receipt Date: 20031009
  Transmission Date: 20080405
  Serious: Yes (Death)
  Sender: FDA-Public Use
  Company Number: JP-ROCHE-345225

PATIENT
  Age: 49 Year
  Sex: Female
  Weight: 68.2 kg

DRUGS (11)
  1. ROCEPHIN [Suspect]
     Indication: PYREXIA
     Route: 042
     Dates: start: 20030510, end: 20030519
  2. ROCEPHIN [Suspect]
     Route: 042
     Dates: start: 20030606, end: 20030609
  3. HERCEPTIN [Suspect]
     Route: 041
     Dates: start: 20030519, end: 20030519
  4. HERCEPTIN [Suspect]
     Route: 041
     Dates: start: 20030526, end: 20030603
  5. TAXOL [Suspect]
     Route: 041
     Dates: start: 20030404, end: 20030404
  6. TAXOL [Suspect]
     Route: 041
     Dates: start: 20030425, end: 20030425
  7. FARMORUBICIN [Suspect]
     Indication: BREAST CANCER METASTATIC
     Route: 041
     Dates: start: 20030403, end: 20030403
  8. FARMORUBICIN [Suspect]
     Route: 041
     Dates: start: 20030424, end: 20030424
  9. CYTOTEC [Suspect]
     Route: 048
     Dates: start: 20030325, end: 20030407
  10. CYTOTEC [Suspect]
     Route: 048
     Dates: start: 20030513, end: 20030623
  11. FURTULON [Concomitant]
     Indication: BREAST CANCER
     Route: 048
     Dates: start: 20030210, end: 20030322

REACTIONS (2)
  - DIARRHOEA [None]
  - METASTASES TO LIVER [None]
